FAERS Safety Report 11306361 (Version 1)
Quarter: 2015Q3

REPORT INFORMATION
  Report Type: Spontaneous
  Country: US (occurrence: US)
  Receive Date: 20150723
  Receipt Date: 20150723
  Transmission Date: 20151125
  Serious: No
  Sender: FDA-Public Use
  Company Number: US-GLAXOSMITHKLINE-US2015105215

PATIENT
  Sex: Female
  Weight: 81 kg

DRUGS (1)
  1. EQUATE NICOTINE [Suspect]
     Active Substance: NICOTINE
     Indication: SMOKING CESSATION THERAPY
     Dosage: 7 MG, UNK

REACTIONS (3)
  - Urticaria [Not Recovered/Not Resolved]
  - Product quality issue [Unknown]
  - Rash [Not Recovered/Not Resolved]
